FAERS Safety Report 20116626 (Version 3)
Quarter: 2024Q2

REPORT INFORMATION
  Report Type: Other
  Country: US (occurrence: None)
  Receive Date: 20211126
  Receipt Date: 20240525
  Transmission Date: 20240715
  Serious: Yes (Other)
  Sender: FDA-Public Use
  Company Number: US-ROCHE-2962275

PATIENT
  Age: 36 Year
  Sex: Female
  Weight: 72.6 kg

DRUGS (1)
  1. OCREVUS [Suspect]
     Active Substance: OCRELIZUMAB
     Indication: Multiple sclerosis
     Dosage: DOSE 600,    FREQUENCY TIME : 6 MONTHS
     Route: 042

REACTIONS (6)
  - Fatigue [Unknown]
  - Diarrhoea [Unknown]
  - Vitamin D decreased [Unknown]
  - Urinary tract infection [Unknown]
  - Insomnia [Unknown]
  - Rash [Unknown]
